FAERS Safety Report 8140586-7 (Version None)
Quarter: 2012Q1

REPORT INFORMATION
  Report Type: 
  Country: None (occurrence: None)
  Receive Date: 20120213
  Receipt Date: 20120213
  Transmission Date: 20120608
  Serious: No
  Sender: FDA-Public Use
  Company Number: None

PATIENT
  Age: 81 Year
  Sex: Male

DRUGS (1)
  1. ALVESCO [Suspect]
     Indication: ASTHMA
     Dosage: INHALE 1 PUFF INTO THE LUNGS TWICE A DAY, RINSE AND SPIT AFTER USE
     Route: 055
     Dates: start: 20111101

REACTIONS (2)
  - DEVICE FAILURE [None]
  - RESPIRATORY TRACT CONGESTION [None]
